FAERS Safety Report 7214041-2 (Version None)
Quarter: 2011Q1

REPORT INFORMATION
  Report Type: 
  Country: None (occurrence: None)
  Receive Date: 20110107
  Receipt Date: 20101228
  Transmission Date: 20110831
  Serious: Yes (Hospitalization)
  Sender: FDA-Public Use
  Company Number: US-BIOGENIDEC-2010BI038722

PATIENT
  Age: 62 Year
  Sex: Female

DRUGS (2)
  1. TYSABRI [Suspect]
     Indication: MULTIPLE SCLEROSIS
     Route: 042
     Dates: start: 20071003, end: 20081113
  2. TYSABRI [Suspect]
     Route: 042
     Dates: start: 20081223

REACTIONS (9)
  - BALANCE DISORDER [None]
  - DRUG EFFECT DECREASED [None]
  - DRUG INEFFECTIVE [None]
  - WHITE BLOOD CELL COUNT INCREASED [None]
  - VISUAL IMPAIRMENT [None]
  - MULTIPLE SCLEROSIS RELAPSE [None]
  - INFUSION SITE EXTRAVASATION [None]
  - FATIGUE [None]
  - BLOOD GLUCOSE INCREASED [None]
